FAERS Safety Report 9580833 (Version 6)
Quarter: 2014Q2

REPORT INFORMATION
  Report Type: Report from Study
  Country: US (occurrence: US)
  Receive Date: 20131002
  Receipt Date: 20140422
  Transmission Date: 20141212
  Serious: Yes (Hospitalization, Other)
  Sender: FDA-Public Use
  Company Number: US-VERTEX PHARMACEUTICALS INC-2013-009934

PATIENT
  Age: 26 Year
  Sex: Male
  Weight: 62 kg

DRUGS (15)
  1. VX-809 FDC [Suspect]
     Indication: CYSTIC FIBROSIS
     Dosage: 400 MG, BID
     Route: 048
     Dates: start: 20130919, end: 20130923
  2. VX-770 FDC [Suspect]
     Indication: CYSTIC FIBROSIS
     Dosage: 250 MG, BID
     Route: 048
     Dates: start: 20130919, end: 20130923
  3. ALBUTEROL [Concomitant]
     Indication: CYSTIC FIBROSIS
     Dosage: 2.5 MG, TID
     Route: 055
     Dates: start: 19960101
  4. PULMOZYME [Concomitant]
     Indication: CYSTIC FIBROSIS
     Dosage: 2.5 MG, TID
     Route: 055
     Dates: start: 19960101
  5. AZITHROMYCIN [Concomitant]
     Indication: CYSTIC FIBROSIS
     Dosage: 500 MG, MWF
     Route: 048
     Dates: start: 20050101
  6. URSODIOL [Concomitant]
     Indication: CYSTIC FIBROSIS
     Dosage: 300 MG, BID
     Route: 048
     Dates: start: 19960101
  7. ZENPEP [Concomitant]
     Indication: CYSTIC FIBROSIS
     Dosage: 109,00 IU, 6 WITH MEALS, 4 WITH SNACKS
     Dates: start: 19960101
  8. PANTOPRAZOLE [Concomitant]
     Indication: CYSTIC FIBROSIS
     Dosage: 40 MG, UNK
     Route: 048
     Dates: start: 19960101
  9. SINGULAIR [Concomitant]
     Indication: CYSTIC FIBROSIS
     Dosage: 10 MG, UNK
     Route: 048
     Dates: start: 20050101
  10. ADVAIR [Concomitant]
     Indication: CYSTIC FIBROSIS
     Dosage: 500/50, 1 DF BID
     Route: 055
     Dates: start: 20050101
  11. PHYTONADIONE [Concomitant]
     Indication: CYSTIC FIBROSIS
     Dosage: 10 MG, UNK
     Route: 048
     Dates: start: 20080101
  12. SOURCECF [Concomitant]
     Indication: CYSTIC FIBROSIS
     Dosage: 1 DF, BID
     Route: 048
     Dates: start: 20110101
  13. TOBI [Concomitant]
     Indication: CYSTIC FIBROSIS
     Dosage: 300 MG, UNK
     Route: 055
     Dates: start: 20130901
  14. AQUADEKS [Concomitant]
     Dosage: 2 DF, QD
     Route: 048
  15. ESOMEPRAZOLE [Concomitant]
     Dosage: 40 MG, BID
     Route: 048

REACTIONS (1)
  - Hepatic encephalopathy [Recovered/Resolved]
